FAERS Safety Report 4279482-4 (Version None)
Quarter: 2004Q1

REPORT INFORMATION
  Report Type: 
  Country: None (occurrence: None)
  Receive Date: 20040127
  Receipt Date: 20040113
  Transmission Date: 20041129
  Serious: Yes (Other)
  Sender: FDA-Public Use
  Company Number: FR-GLAXOSMITHKLINE-B0320050A

PATIENT
  Age: 84 Year
  Sex: Female

DRUGS (11)
  1. DEROXAT [Suspect]
     Indication: DEPRESSION
     Route: 048
     Dates: end: 20040113
  2. ZOMETA [Concomitant]
     Indication: BREAST CANCER
  3. TRIATEC [Concomitant]
     Dosage: 2.5MG PER DAY
     Route: 048
  4. ARIMIDEX [Concomitant]
     Indication: BREAST CANCER
     Dosage: 1MG PER DAY
     Route: 048
  5. DIGOXIN [Concomitant]
     Route: 048
  6. TRAMADOL HCL [Concomitant]
     Route: 048
  7. FELODIPINE [Concomitant]
     Route: 048
  8. LASILIX [Concomitant]
     Dosage: 40MG PER DAY
     Route: 048
  9. CORDARONE [Concomitant]
     Route: 048
  10. CALCIPARINE [Concomitant]
  11. OFLOCET [Concomitant]
     Route: 048
     Dates: start: 20040104

REACTIONS (2)
  - RECTAL HAEMORRHAGE [None]
  - THROMBOCYTOPENIA [None]
